FAERS Safety Report 6964375-1 (Version None)
Quarter: 2010Q3

REPORT INFORMATION
  Report Type: 
  Country: None (occurrence: None)
  Receive Date: 20100903
  Receipt Date: 20100830
  Transmission Date: 20110219
  Serious: Yes (Hospitalization, Other)
  Sender: FDA-Public Use
  Company Number: US-ASTRAZENECA-2008UW04662

PATIENT
  Age: 17275 Day
  Sex: Male
  Weight: 76.7 kg

DRUGS (14)
  1. SEROQUEL [Suspect]
     Indication: DEPRESSION
     Dosage: 25 MG TO 100 MG
     Route: 048
     Dates: start: 20060322, end: 20070501
  2. SEROQUEL [Suspect]
     Indication: ANXIETY
     Dosage: 25 MG TO 100 MG
     Route: 048
     Dates: start: 20060322, end: 20070501
  3. SEROQUEL [Suspect]
     Indication: INSOMNIA
     Dosage: 25 MG TO 100 MG
     Route: 048
     Dates: start: 20060322, end: 20070501
  4. ABILIFY [Concomitant]
     Dates: start: 20090101
  5. CLONAZEPAM [Concomitant]
     Dates: start: 20090101
  6. CLONIDINE [Concomitant]
     Dates: start: 20061216
  7. TRAZODONE HCL [Concomitant]
     Indication: CONSTIPATION
     Dosage: 1-2 AT NIGHT
     Dates: start: 20060322
  8. TRAZODONE HCL [Concomitant]
     Indication: DRY MOUTH
     Dosage: 1-2 AT NIGHT
     Dates: start: 20060322
  9. TRAZODONE HCL [Concomitant]
     Indication: SLEEP DISORDER
     Dosage: 1-2 AT NIGHT
     Dates: start: 20060322
  10. PAXIL [Concomitant]
     Dates: start: 20060322
  11. WELLBUTRIN XL [Concomitant]
     Dates: start: 20060301, end: 20060301
  12. LOVASTATIN [Concomitant]
     Route: 048
     Dates: start: 20061216
  13. BUSPAR [Concomitant]
     Indication: ANXIETY
     Dates: start: 20061217
  14. ASPIRIN [Concomitant]
     Route: 048
     Dates: start: 20061217

REACTIONS (7)
  - BLOOD CHOLESTEROL INCREASED [None]
  - BLOOD TRIGLYCERIDES INCREASED [None]
  - DIABETIC COMPLICATION [None]
  - HYPERGLYCAEMIA [None]
  - HYPERLIPIDAEMIA [None]
  - PROSTATE CANCER [None]
  - TYPE 2 DIABETES MELLITUS [None]
